FAERS Safety Report 24927750 (Version 1)
Quarter: 2025Q1

REPORT INFORMATION
  Report Type: Spontaneous
  Country: US (occurrence: None)
  Receive Date: 20250204
  Receipt Date: 20250204
  Transmission Date: 20250409
  Serious: Yes (Hospitalization)
  Sender: FDA-CTU
  Company Number: None

PATIENT
  Age: 65 Year
  Sex: Female

DRUGS (1)
  1. LENALIDOMIDE [Suspect]
     Active Substance: LENALIDOMIDE
     Indication: Plasma cell myeloma

REACTIONS (6)
  - Dyspnoea [None]
  - Chest pain [None]
  - Peripheral swelling [None]
  - Stress [None]
  - Renal disorder [None]
  - Colitis [None]

NARRATIVE: CASE EVENT DATE: 20250120
